FAERS Safety Report 9995396 (Version 1)
Quarter: 2014Q1

REPORT INFORMATION
  Report Type: Spontaneous
  Country: US (occurrence: None)
  Receive Date: 20140214
  Receipt Date: 20140214
  Transmission Date: 20141002
  Serious: Yes (Other)
  Sender: FDA-Public Use
  Company Number: US-013673

PATIENT
  Age: 59 Year
  Sex: Male
  Weight: 122.47 kg

DRUGS (7)
  1. PREPOPIK [Suspect]
     Indication: BOWEL PREPARATION
     Dosage: FIRST PACKET 6PM AND SECOND PACKET 11:45PM
     Dates: start: 20131111, end: 20131111
  2. METFORMIN [Concomitant]
  3. LISINOPRIL [Concomitant]
  4. ALLOPURINOL [Concomitant]
  5. POTASSIUM CHLORIDE [Concomitant]
  6. OMEPRAZOLE [Concomitant]
  7. GABAPENTIN [Concomitant]

REACTIONS (1)
  - Drug ineffective [None]
